FAERS Safety Report 9112241 (Version 1)
Quarter: 2013Q1

REPORT INFORMATION
  Report Type: Spontaneous
  Country: US (occurrence: US)
  Receive Date: 20130219
  Receipt Date: 20130219
  Transmission Date: 20140127
  Serious: No
  Sender: FDA-Public Use
  Company Number: US-BRISTOL-MYERS SQUIBB COMPANY-16366049

PATIENT
  Age: 58 Year
  Sex: Female

DRUGS (3)
  1. ORENCIA [Suspect]
     Route: 042
     Dates: start: 20110321, end: 20111101
  2. PREDNISONE [Concomitant]
  3. LIPITOR [Concomitant]

REACTIONS (1)
  - Cough [Recovering/Resolving]
